FAERS Safety Report 20517777 (Version 1)
Quarter: 2022Q1

REPORT INFORMATION
  Report Type: Spontaneous
  Country: US (occurrence: None)
  Receive Date: 20220225
  Receipt Date: 20220225
  Transmission Date: 20220424
  Serious: No
  Sender: FDA-Public Use
  Company Number: 2022A061539

PATIENT
  Sex: Female
  Weight: 112.5 kg

DRUGS (1)
  1. BYDUREON BCISE [Suspect]
     Active Substance: EXENATIDE
     Indication: Blood glucose decreased
     Route: 058

REACTIONS (2)
  - Injection site extravasation [Unknown]
  - Incorrect dose administered by device [Not Recovered/Not Resolved]
